FAERS Safety Report 22210696 (Version 1)
Quarter: 2023Q2

REPORT INFORMATION
  Report Type: Spontaneous
  Country: US (occurrence: US)
  Receive Date: 20230414
  Receipt Date: 20230414
  Transmission Date: 20230722
  Serious: No
  Sender: FDA-Public Use
  Company Number: US-AUROBINDO-AUR-APL-2022-011053

PATIENT
  Sex: Female

DRUGS (1)
  1. DROSPIRENONE\ETHINYL ESTRADIOL [Suspect]
     Active Substance: DROSPIRENONE\ETHINYL ESTRADIOL
     Indication: Product used for unknown indication
     Dosage: UNK
     Route: 065

REACTIONS (10)
  - Heavy menstrual bleeding [Unknown]
  - Acne cystic [Unknown]
  - Migraine [Unknown]
  - Muscle spasms [Unknown]
  - Night sweats [Unknown]
  - Fatigue [Unknown]
  - Mood altered [Unknown]
  - Diarrhoea [Unknown]
  - Intermenstrual bleeding [Unknown]
  - Product substitution [Unknown]
